FAERS Safety Report 8518948-5 (Version None)
Quarter: 2012Q3

REPORT INFORMATION
  Report Type: 
  Country: None (occurrence: None)
  Receive Date: 20120718
  Receipt Date: 20120710
  Transmission Date: 20120928
  Serious: Yes (Other)
  Sender: FDA-Public Use
  Company Number: JP-GLAXOSMITHKLINE-B0795331A

PATIENT
  Age: 59 Year
  Sex: Female

DRUGS (38)
  1. CHINESE MEDICINE [Concomitant]
     Dosage: 2IUAX PER DAY
     Route: 048
     Dates: start: 20080229, end: 20080229
  2. MAGLAX [Concomitant]
     Dosage: 6IUAX PER DAY
     Route: 048
     Dates: start: 20080306, end: 20080307
  3. HEPARIN LOCK-FLUSH [Concomitant]
     Dosage: 1IUAX PER DAY
     Route: 042
     Dates: start: 20080222, end: 20080223
  4. LACTEC [Concomitant]
     Dosage: 2IUAX PER DAY
     Route: 042
     Dates: start: 20080223, end: 20080224
  5. ISOTONIC SODIUM CHLORIDE SOLUTION [Concomitant]
     Dosage: 10ML PER DAY
     Route: 042
     Dates: start: 20080222, end: 20080222
  6. ARIXTRA [Suspect]
     Indication: THROMBOSIS PROPHYLAXIS
     Dosage: 2.5MG PER DAY
     Route: 058
     Dates: start: 20080223
  7. INDOMETHACIN [Concomitant]
     Route: 061
     Dates: start: 20080304, end: 20080307
  8. SEISHOKU [Concomitant]
     Dosage: 2IUAX PER DAY
     Route: 042
     Dates: start: 20080223, end: 20080224
  9. CHINESE MEDICINE [Concomitant]
     Dosage: 2IUAX PER DAY
     Route: 048
     Dates: start: 20080225, end: 20080226
  10. CHINESE MEDICINE [Concomitant]
     Dosage: 3IUAX PER DAY
     Route: 048
     Dates: start: 20080301, end: 20080304
  11. LACTEC [Concomitant]
     Dosage: 5IUAX PER DAY
     Route: 042
     Dates: start: 20080222, end: 20080222
  12. WHOLE HUMAN BLOOD [Concomitant]
     Dosage: 2IUAX PER DAY
     Route: 042
     Dates: start: 20080222, end: 20080223
  13. CHINESE MEDICINE [Concomitant]
     Dosage: 1IUAX PER DAY
     Route: 048
     Dates: start: 20080305, end: 20080305
  14. SOLITA-T NO.3 [Concomitant]
     Dosage: 3IUAX PER DAY
     Route: 042
     Dates: start: 20080222, end: 20080224
  15. NICARDIPINE HCL [Concomitant]
     Dosage: 1IUAX PER DAY
     Route: 042
     Dates: start: 20080222, end: 20080224
  16. HESPAN IN EXCEL PLASTIC CONTAINER [Concomitant]
     Dosage: 1IUAX PER DAY
     Dates: start: 20080222, end: 20080224
  17. CEFAZOLIN SODIUM [Concomitant]
     Dosage: 2IUAX PER DAY
     Dates: start: 20080223, end: 20080224
  18. SEISHOKU [Concomitant]
     Dosage: 3IUAX PER DAY
     Route: 042
     Dates: start: 20080222, end: 20080222
  19. SEISHOKU [Concomitant]
     Dosage: 2.9IUAX PER DAY
     Route: 042
     Dates: start: 20080222, end: 20080222
  20. MAGLAX [Concomitant]
     Dosage: 18IUAX PER DAY
     Route: 048
     Dates: start: 20080305, end: 20080305
  21. VOLTAREN [Concomitant]
     Dosage: 1IUAX PER DAY
     Route: 054
     Dates: start: 20080223, end: 20080223
  22. HEPARIN [Concomitant]
     Dosage: 35ML PER DAY
     Dates: start: 20080222, end: 20080222
  23. PREDOPA [Concomitant]
     Dosage: 1IUAX PER DAY
     Route: 042
     Dates: start: 20080222, end: 20080224
  24. CEFAZOLIN SODIUM [Concomitant]
     Dosage: 3IUAX PER DAY
     Dates: start: 20080222, end: 20080222
  25. CHINESE MEDICINE [Concomitant]
     Dosage: 3IUAX PER DAY
     Route: 048
     Dates: start: 20080227, end: 20080228
  26. ROPIVACAINE HYDROCHLORIDE [Concomitant]
     Dosage: 200ML PER DAY
     Route: 008
     Dates: start: 20080222, end: 20080223
  27. DOPAMINE HCL [Concomitant]
     Dosage: 1IUAX PER DAY
     Route: 042
     Dates: start: 20080222, end: 20080224
  28. PRIMPERAN TAB [Concomitant]
     Dosage: 1IUAX PER DAY
     Dates: start: 20080222, end: 20080224
  29. FUROSEMIDE [Concomitant]
     Dosage: .5IUAX PER DAY
     Route: 042
     Dates: start: 20080222, end: 20080224
  30. XYLOCAINE W/ EPINEPHRINE [Concomitant]
     Dosage: 10ML PER DAY
     Dates: start: 20080222, end: 20080222
  31. MAGLAX [Concomitant]
     Dosage: 6IUAX PER DAY
     Route: 048
     Dates: start: 20080302, end: 20080304
  32. ATARAX [Concomitant]
     Dosage: 1IUAX PER DAY
     Dates: start: 20080222, end: 20080224
  33. HEPARIN LOCK-FLUSH [Concomitant]
     Dosage: 2IUAX PER DAY
     Route: 042
     Dates: start: 20080224, end: 20080224
  34. SEISHOKU [Concomitant]
     Dosage: 1IUAX PER DAY
     Route: 042
     Dates: start: 20080222, end: 20080223
  35. CHINESE MEDICINE [Concomitant]
     Dosage: 3IUAX PER DAY
     Route: 048
     Dates: start: 20080306, end: 20080307
  36. MAGLAX [Concomitant]
     Dosage: 2IUAX PER DAY
     Route: 048
     Dates: start: 20080301, end: 20080301
  37. PENTAZOCINE LACTATE [Concomitant]
     Dosage: .5IUAX PER DAY
     Dates: start: 20080222, end: 20080224
  38. SEISHOKU [Concomitant]
     Dosage: 2IUAX PER DAY
     Route: 042
     Dates: start: 20080222, end: 20080224

REACTIONS (1)
  - HEPATIC ENZYME INCREASED [None]
